FAERS Safety Report 11415615 (Version 1)
Quarter: 2015Q3

REPORT INFORMATION
  Report Type: Spontaneous
  Country: US (occurrence: None)
  Receive Date: 20150824
  Receipt Date: 20150824
  Transmission Date: 20151125
  Serious: Yes (Other)
  Sender: FDA-Public Use
  Company Number: None

PATIENT
  Age: 65 Year
  Sex: Female
  Weight: 62.6 kg

DRUGS (8)
  1. FLUOXETINE HCL [Concomitant]
     Active Substance: FLUOXETINE HYDROCHLORIDE
  2. HYDROCODON-ACETAMINOPHEN 5-325 [Concomitant]
  3. IBUPROFEN. [Concomitant]
     Active Substance: IBUPROFEN
  4. LEVOTHYROXINE. [Concomitant]
     Active Substance: LEVOTHYROXINE
  5. NEXIUM [Concomitant]
     Active Substance: ESOMEPRAZOLE MAGNESIUM
  6. GABAPENTIN 300 MG [Suspect]
     Active Substance: GABAPENTIN
     Indication: BACK PAIN
     Dosage: 1 PILL
     Route: 048
     Dates: start: 20150812, end: 20150822
  7. VESICARE [Concomitant]
     Active Substance: SOLIFENACIN SUCCINATE
  8. TYLENOL EXTRA STRENGTH [Concomitant]
     Active Substance: ACETAMINOPHEN

REACTIONS (8)
  - Memory impairment [None]
  - Confusional state [None]
  - Dyspepsia [None]
  - Feeling drunk [None]
  - Drug dose omission [None]
  - Abnormal behaviour [None]
  - Visual impairment [None]
  - Euphoric mood [None]

NARRATIVE: CASE EVENT DATE: 20150822
